FAERS Safety Report 5140501-4 (Version None)
Quarter: 2006Q4

REPORT INFORMATION
  Report Type: 
  Country: None (occurrence: None)
  Receive Date: 20061031
  Receipt Date: 20060905
  Transmission Date: 20070319
  Serious: Yes (Hospitalization)
  Sender: FDA-Public Use
  Company Number: CA-BRISTOL-MYERS SQUIBB COMPANY-13503461

PATIENT
  Age: 69 Year
  Sex: Male
  Weight: 56 kg

DRUGS (8)
  1. CETUXIMAB [Suspect]
     Indication: NON-SMALL CELL LUNG CANCER METASTATIC
     Route: 042
     Dates: start: 20060808, end: 20060829
  2. DOCETAXEL [Suspect]
     Indication: NON-SMALL CELL LUNG CANCER METASTATIC
     Route: 042
     Dates: start: 20060808, end: 20060829
  3. VENTOLIN [Concomitant]
     Indication: EMPHYSEMA
     Dates: start: 20030101
  4. SPIRIVA [Concomitant]
     Indication: EMPHYSEMA
     Dates: start: 20030101
  5. SYMBICORT [Concomitant]
     Indication: EMPHYSEMA
     Dates: start: 20030101
  6. COLACE [Concomitant]
     Indication: CONSTIPATION
     Dates: start: 20060803
  7. SENNA [Concomitant]
     Indication: CONSTIPATION
     Dates: start: 20060803
  8. SURFAK [Concomitant]
     Indication: CONSTIPATION
     Dates: start: 20060803

REACTIONS (8)
  - ABDOMINAL PAIN [None]
  - ANOREXIA [None]
  - COGNITIVE DISORDER [None]
  - CONFUSIONAL STATE [None]
  - CONSTIPATION [None]
  - DEPRESSION [None]
  - FATIGUE [None]
  - MOOD ALTERED [None]
